FAERS Safety Report 6701807 (Version 8)
Quarter: 2012Q4

REPORT INFORMATION
  Report Type: 
  Country: US (occurrence: US)
  Receive Date: 20080717
  Receipt Date: 20120830
  Transmission Date: 20130627
  Serious: Yes (Death, Other)
  Sender: FDA-Public Use
  Company Number: US-ALLERGAN-0808501US

PATIENT
  Age: 60 Year
  Sex: Male
  Weight: 74.38 kg

DRUGS (18)
  1. BOTOX [Suspect]
     Indication: INCREASED SALIVATION
     Dosage: UNK, single
     Dates: start: 20080205, end: 20080205
  2. BOTOX [Suspect]
     Dosage: 100 UNITS, single
     Dates: start: 20080304, end: 20080304
  3. COLACE [Concomitant]
     Indication: CONSTIPATION
     Dosage: 100 mg, 2 Tabs prn
     Route: 048
  4. FLONASE [Concomitant]
     Dosage: 1 spray each nostril, bid
     Route: 055
  5. VITAMIN C [Concomitant]
     Indication: SUPPLEMENTATION THERAPY
     Dosage: 500 mg, qd
     Route: 048
  6. ASPIRIN [Concomitant]
     Indication: CEREBROVASCULAR ACCIDENT PROPHYLAXIS
     Dosage: 325 mg, qd
     Route: 048
  7. MULTIVITAMIN [Concomitant]
     Indication: SUPPLEMENTATION THERAPY
     Dosage: 1 Tablet, qd
     Route: 048
  8. PREVACID [Concomitant]
     Indication: GERD
     Dosage: 30 mg, qd
     Route: 048
  9. FISH OIL [Concomitant]
     Indication: SUPPLEMENTATION THERAPY
     Dosage: 1 Capsule, bid
     Route: 048
  10. LIPITOR [Concomitant]
     Indication: HIGH CHOLESTEROL
     Dosage: 20 mg, qhs
     Route: 048
  11. DIOVAN [Concomitant]
     Indication: HYPERTENSION
     Dosage: 320 mg, qd
     Route: 048
  12. TOPROL XL [Concomitant]
     Indication: HYPERTENSION
     Dosage: 25 mg, qpm
     Route: 048
  13. TOPROL XL [Concomitant]
     Dosage: 75 mg, qpm
     Route: 048
     Dates: start: 20080116
  14. TOPROL XL [Concomitant]
     Dosage: 100 mg, qhs
     Route: 048
     Dates: start: 20080204
  15. TOPROL XL [Concomitant]
     Dosage: 200 mg, qhs
     Route: 048
  16. SINEMET [Concomitant]
     Indication: DYSKINESIA
     Dosage: 2 Tablets, tid
     Route: 048
  17. LEVSIN SL [Concomitant]
     Indication: SECRETION DISCHARGE
     Dosage: 0.125 mg, q12h
     Route: 060
  18. ALLOPURINOL [Concomitant]
     Dosage: 300 mg, qd
     Route: 048

REACTIONS (14)
  - Pneumonia aspiration [Fatal]
  - Dysphagia [Unknown]
  - Dysphonia [Unknown]
  - Dehydration [None]
  - Catheter site infection [None]
  - Acute prerenal failure [None]
  - Atelectasis [None]
  - Staphylococcal infection [None]
  - Sepsis [None]
  - Blood culture positive [None]
  - Acute respiratory failure [None]
  - Hyponatraemia [None]
  - Renal failure [None]
  - Shock [None]
